FAERS Safety Report 22605084 (Version 3)
Quarter: 2023Q2

REPORT INFORMATION
  Report Type: Report from Study
  Country: TW (occurrence: TW)
  Receive Date: 20230615
  Receipt Date: 20230626
  Transmission Date: 20230722
  Serious: Yes (Life-Threatening, Hospitalization)
  Sender: FDA-Public Use
  Company Number: TW-JNJFOC-20230625928

PATIENT
  Age: 61 Year
  Sex: Male
  Weight: 65 kg

DRUGS (49)
  1. TECLISTAMAB [Suspect]
     Active Substance: TECLISTAMAB
     Indication: Plasma cell myeloma refractory
     Route: 058
     Dates: start: 20220809, end: 20220815
  2. TECLISTAMAB [Suspect]
     Active Substance: TECLISTAMAB
     Route: 058
     Dates: start: 20220817, end: 20230417
  3. DARATUMUMAB [Suspect]
     Active Substance: DARATUMUMAB
     Indication: Plasma cell myeloma refractory
     Dosage: 15 ML
     Route: 058
     Dates: start: 20220808, end: 20230417
  4. THYROXINE [Concomitant]
     Active Substance: LEVOTHYROXINE
     Indication: Hypothyroidism
     Dosage: 0.15 (UNIT DOSE NOT PROVIDED)
     Route: 048
     Dates: start: 20180809
  5. ACYCLOVIR [Concomitant]
     Active Substance: ACYCLOVIR
     Indication: Prophylaxis
     Dosage: 400 NO UNIT DOSE PROVIDED
     Route: 048
     Dates: start: 20220816
  6. COTRIMOXAZOLE [Concomitant]
     Active Substance: SULFAMETHOXAZOLE\TRIMETHOPRIM
     Indication: Infection prophylaxis
     Dosage: 1-  NO UNIT DOSE PROVIDED (SMZ 400MG+TMP 80MG)
     Route: 048
     Dates: start: 20220816
  7. FEXOFENADINE [Concomitant]
     Active Substance: FEXOFENADINE HYDROCHLORIDE
     Indication: Upper respiratory tract infection
     Dosage: 180 NO UNIT DOSE PROVIDED
     Route: 048
     Dates: start: 20230320, end: 20230515
  8. DEXTROMETHORPHAN [Concomitant]
     Active Substance: DEXTROMETHORPHAN
     Indication: Upper respiratory tract infection
     Dosage: 15 NO UNIT DOSE PROVIDED
     Route: 048
     Dates: start: 20230509, end: 20230511
  9. DOXYCYCLINE [Concomitant]
     Active Substance: DOXYCYCLINE
     Indication: Upper respiratory tract infection
     Dosage: 100 NO UNIT DOSE PROVIDED
     Route: 048
     Dates: start: 20230509, end: 20230511
  10. LORATADINE [Concomitant]
     Active Substance: LORATADINE
     Indication: Upper respiratory tract infection
     Dosage: 1 NO UNIT DOSE PROVIDED
     Route: 048
     Dates: start: 20230509, end: 20230511
  11. MONTELUKAST SODIUM [Concomitant]
     Active Substance: MONTELUKAST SODIUM
     Indication: Upper respiratory tract infection
     Dosage: 0.5 NO UNIT DOSE PROVIDED
     Route: 048
     Dates: start: 20230509, end: 20230511
  12. RIFAMPIN [Concomitant]
     Active Substance: RIFAMPIN
     Indication: Upper respiratory tract infection
     Dosage: 300 NO UNIT DOSE PROVIDED
     Route: 048
     Dates: start: 20230509, end: 20230511
  13. STROCAIN [OXETACAINE] [Concomitant]
     Indication: Upper respiratory tract infection
     Dosage: 1 - NO UNIT DOSE PROVIDED (OXETHAZAINE 5MG,POLYMIGEL 244MG)
     Route: 048
     Dates: start: 20230509, end: 20230511
  14. THEOPHYLLINE ANHYDROUS [Concomitant]
     Active Substance: THEOPHYLLINE ANHYDROUS
     Indication: Upper respiratory tract infection
     Dosage: 0.25 NO UNIT DOSE PROVIDED
     Route: 048
     Dates: start: 20230509, end: 20230511
  15. ZCOUGH [Concomitant]
     Indication: Upper respiratory tract infection
     Dosage: 100 NO UNIT DOSE PROVIDED
     Route: 048
     Dates: start: 20230509, end: 20230511
  16. BETAMETHASONE [Concomitant]
     Active Substance: BETAMETHASONE
     Indication: Upper respiratory tract infection
     Dosage: 1 NO UNIT DOSE PROVIDED
     Route: 048
     Dates: start: 20230513, end: 20230515
  17. BUDESONIDE [Concomitant]
     Active Substance: BUDESONIDE
     Indication: Upper respiratory tract infection
     Dosage: 1 NO UNIT DOSE PROVIDED
     Route: 045
     Dates: start: 20230513, end: 20230515
  18. CETIRIZINE HYDROCHLORIDE [Concomitant]
     Active Substance: CETIRIZINE HYDROCHLORIDE
     Indication: Upper respiratory tract infection
     Dosage: 10 NO DOSE UNIT PROVIDED
     Route: 048
     Dates: start: 20230513, end: 20230515
  19. COLIN [CHLORPHENAMINE MALEATE;GLYCYRRHIZIC ACID;PLATYCODON GRANDIFLORU [Concomitant]
     Indication: Upper respiratory tract infection
     Dosage: 1 NO UNIT DOSE PROVIDED
     Route: 048
     Dates: start: 20230513, end: 20230515
  20. FINSKA LP [Concomitant]
     Indication: Upper respiratory tract infection
     Dosage: 1 NO UNIT DOSE PROVIDED (PSEUDOEPHEDRINE120MG + LORATADINE 5MG)
     Route: 048
     Dates: start: 20230513, end: 20230515
  21. NOSCAPINE [Concomitant]
     Active Substance: NOSCAPINE
     Indication: Upper respiratory tract infection
     Dosage: 20 NO UNIT DOSE PROVIDED
     Route: 048
     Dates: start: 20230513, end: 20230515
  22. OFLOXACIN [Concomitant]
     Active Substance: OFLOXACIN
     Indication: Upper respiratory tract infection
     Dosage: 200 NO UNIT DOSE PROVIDED
     Route: 048
     Dates: start: 20230513, end: 20230515
  23. OXETHAZAINE [Concomitant]
     Active Substance: OXETHAZAINE
     Indication: Prophylaxis
     Dosage: 10 NO UNIT DOSE PROVIDED
     Route: 048
     Dates: start: 20230513, end: 20230515
  24. PAWELL [Concomitant]
     Indication: Prophylaxis
     Dosage: 1 NO UNIT DOSE PROVIDED
     Route: 048
     Dates: start: 20230513, end: 20230515
  25. TIPEPIDINE HIBENZATE [Concomitant]
     Active Substance: TIPEPIDINE HIBENZATE
     Indication: Upper respiratory tract infection
     Dosage: 20- NO UNIT DOSE PROVIDED
     Route: 048
     Dates: start: 20230513, end: 20230515
  26. AMBROXOL HYDROCHLORIDE [Concomitant]
     Active Substance: AMBROXOL HYDROCHLORIDE
     Indication: Acute sinusitis
     Dosage: 30- NO UNIT DOSE PROVIDED
     Route: 048
     Dates: start: 20230516, end: 20230612
  27. FAMOTIDINE [Concomitant]
     Active Substance: FAMOTIDINE
     Indication: Prophylaxis
     Dosage: 20- NO UNIT DOSE PROVIDED
     Route: 048
     Dates: start: 20230516
  28. LEVOCETIRIZINE [Concomitant]
     Active Substance: LEVOCETIRIZINE
     Indication: Acute sinusitis
     Dosage: 5- NO UNIT DOSE PROVIDED
     Route: 048
     Dates: start: 20230516
  29. AMOXICILLIN\CLAVULANIC ACID [Concomitant]
     Active Substance: AMOXICILLIN\CLAVULANIC ACID
     Indication: Infection prophylaxis
     Dosage: 1-NO UNIT DOSE PROVIDED (CLAVULANIC ACID 125MG + AMOXYCILLIN 875MG)
     Route: 048
     Dates: start: 20220816, end: 20230522
  30. ENTECAVIR [Concomitant]
     Active Substance: ENTECAVIR
     Indication: Hepatitis B reactivation
     Dosage: 0.5- NO UNIT DOSE PROVIDED
     Route: 048
     Dates: start: 20230516, end: 20230606
  31. ENTECAVIR [Concomitant]
     Active Substance: ENTECAVIR
     Dosage: 0.5- NO UNIT DOSE PROVIDED
     Route: 048
     Dates: start: 20230607
  32. FLUTICASONE FUROATE [Concomitant]
     Active Substance: FLUTICASONE FUROATE
     Indication: Acute sinusitis
     Dosage: 1 NO UNIT DOSE PROVIDED
     Route: 045
     Dates: start: 20230523
  33. CLARITHROMYCIN [Concomitant]
     Active Substance: CLARITHROMYCIN
     Indication: Acute sinusitis
     Dosage: 500 NO UNIT DOSE PROVIDED
     Route: 048
     Dates: start: 20230523, end: 20230605
  34. BROWN MIXTURE [ANTIMONY POTASSIUM TARTRATE;GLYCYRRHIZA SPP.;PAPAVER SO [Concomitant]
     Indication: COVID-19
     Dosage: 3 NO UNIT DOSE PROVIDED
     Route: 048
     Dates: start: 20230529, end: 20230529
  35. BROWN MIXTURE [ANTIMONY POTASSIUM TARTRATE;GLYCYRRHIZA SPP.;PAPAVER SO [Concomitant]
     Dosage: 3 NO UNIT DOSE PROVIDED
     Route: 048
     Dates: start: 20230603
  36. CETIRIZINE [Concomitant]
     Active Substance: CETIRIZINE HYDROCHLORIDE
     Indication: COVID-19
     Dosage: 1 UNIT DOSE NOT PROVIDED
     Route: 048
     Dates: start: 20230529, end: 20230529
  37. CETIRIZINE [Concomitant]
     Active Substance: CETIRIZINE HYDROCHLORIDE
     Dosage: 1 UNIT DOSE NOT PROVIDED
     Route: 048
     Dates: start: 20230603, end: 20230605
  38. CIMETIDINE [Concomitant]
     Active Substance: CIMETIDINE
     Indication: Prophylaxis
     Dosage: 1 NO UNIT DOSE PROVIDED
     Route: 048
     Dates: start: 20230529, end: 20230529
  39. CIMETIDINE [Concomitant]
     Active Substance: CIMETIDINE
     Dosage: 1 NO UNIT DOSE PROVIDED
     Route: 048
     Dates: start: 20230603, end: 20230605
  40. COUDE [Concomitant]
     Indication: COVID-19
     Dosage: 1 UNIT DOSE NOT PROVIDED
     Route: 048
     Dates: start: 20230529, end: 20230529
  41. COUDE [Concomitant]
     Dosage: 1 UNIT DOSE NOT PROVIDED
     Route: 048
     Dates: start: 20230603, end: 20230605
  42. IBUPROFEN [Concomitant]
     Active Substance: IBUPROFEN
     Indication: COVID-19
     Dosage: 400 NO UNIT DOSE PROVIDED
     Route: 048
     Dates: start: 20230529, end: 20230529
  43. MEQUITAZINE [Concomitant]
     Active Substance: MEQUITAZINE
     Indication: COVID-19
     Dosage: 5 UNIT DOSE NOT PROVIDED
     Route: 048
     Dates: start: 20230529, end: 20230529
  44. PREDNISOLONE [Concomitant]
     Active Substance: PREDNISOLONE
     Indication: COVID-19
     Dosage: 5 NO UNIT DOSE PROVIDED
     Route: 048
     Dates: start: 20230529, end: 20230529
  45. PAXLOVID [Concomitant]
     Active Substance: NIRMATRELVIR\RITONAVIR
     Indication: COVID-19
     Dosage: 3 NO UNIT DOSE PROVIDED
     Route: 048
     Dates: start: 20230529, end: 20230602
  46. DIPHENHYDRAMINE HYDROCHLORIDE [Concomitant]
     Active Substance: DIPHENHYDRAMINE HYDROCHLORIDE
     Indication: Prophylaxis
     Route: 042
     Dates: start: 20230530, end: 20230530
  47. HUMAN IMMUNOGLOBULIN G [Concomitant]
     Active Substance: HUMAN IMMUNOGLOBULIN G
     Indication: Blood immunoglobulin G decreased
     Dosage: 27 UNIT DOSE NOT PROVIDED
     Route: 042
     Dates: start: 20230530, end: 20230530
  48. ACTEIN [Concomitant]
     Indication: COVID-19
     Dosage: 66.7 NO UNIT DOSE PROVIDED
     Route: 048
     Dates: start: 20230603, end: 20230605
  49. PROCATEROL HCL [Concomitant]
     Indication: COVID-19
     Dosage: 25 NO UNIT DOSE PROVIDED
     Route: 048
     Dates: start: 20230603, end: 20230605

REACTIONS (1)
  - COVID-19 pneumonia [Not Recovered/Not Resolved]

NARRATIVE: CASE EVENT DATE: 20230608
